FAERS Safety Report 25172729 (Version 1)
Quarter: 2025Q2

REPORT INFORMATION
  Report Type: Report from Study
  Country: CA (occurrence: CA)
  Receive Date: 20250408
  Receipt Date: 20250408
  Transmission Date: 20250716
  Serious: Yes (Other)
  Sender: SANDOZ
  Company Number: CA-002147023-NVSC2022CA223740

PATIENT
  Sex: Male

DRUGS (3)
  1. HYRIMOZ [Suspect]
     Active Substance: ADALIMUMAB-ADAZ
     Dosage: 40 MG, QW (40MG;WEEKLY)
     Route: 058
  2. HYRIMOZ [Suspect]
     Active Substance: ADALIMUMAB-ADAZ
     Dosage: 40 MG, Q2W
     Route: 058
     Dates: start: 20220501
  3. HYRIMOZ [Suspect]
     Active Substance: ADALIMUMAB-ADAZ
     Indication: Crohn^s disease
     Dosage: 80 MG, QW
     Route: 058
     Dates: start: 20220501

REACTIONS (11)
  - Uveitis [Unknown]
  - Calcium deficiency [Unknown]
  - Tooth injury [Unknown]
  - Tooth loss [Unknown]
  - Lacrimation increased [Unknown]
  - Eye pruritus [Unknown]
  - General physical health deterioration [Unknown]
  - Diarrhoea [Unknown]
  - Off label use [Unknown]
  - Off label use [Unknown]
  - Product dose omission issue [Unknown]

NARRATIVE: CASE EVENT DATE: 20220101
